FAERS Safety Report 14174963 (Version 2)
Quarter: 2017Q4

REPORT INFORMATION
  Report Type: Report from Study
  Country: US (occurrence: US)
  Receive Date: 20171109
  Receipt Date: 20171130
  Transmission Date: 20180321
  Serious: Yes (Hospitalization, Other)
  Sender: FDA-Public Use
  Company Number: US-ASTRAZENECA-2017SF14057

PATIENT
  Age: 33742 Day
  Sex: Male

DRUGS (1)
  1. IRESSA [Suspect]
     Active Substance: GEFITINIB
     Indication: LUNG NEOPLASM MALIGNANT
     Route: 048
     Dates: start: 20171012

REACTIONS (3)
  - Diarrhoea [Unknown]
  - Vision blurred [Unknown]
  - Blood urine present [Unknown]

NARRATIVE: CASE EVENT DATE: 20171018
